FAERS Safety Report 8129316-2 (Version None)
Quarter: 2012Q1

REPORT INFORMATION
  Report Type: 
  Country: None (occurrence: None)
  Receive Date: 20120210
  Receipt Date: 20120202
  Transmission Date: 20120608
  Serious: Yes (Other)
  Sender: FDA-Public Use
  Company Number: PHHY2012JP009180

PATIENT
  Age: 36 Year
  Sex: Female

DRUGS (2)
  1. MITOXANTRONE [Suspect]
     Dosage: 38 MG/M (TOTAL DOSE)
     Dates: start: 20090601
  2. PREDNISOLONE [Suspect]
     Dosage: 11 MG/DAY
     Dates: start: 20100501

REACTIONS (9)
  - NAUSEA [None]
  - HERPES ZOSTER [None]
  - MENINGITIS [None]
  - MUSCULOSKELETAL STIFFNESS [None]
  - HEADACHE [None]
  - MENINGISM [None]
  - NEUROMYELITIS OPTICA [None]
  - PYREXIA [None]
  - RASH ERYTHEMATOUS [None]
